FAERS Safety Report 9550125 (Version 2)
Quarter: 2013Q4

REPORT INFORMATION
  Report Type: Report from Study
  Country: US (occurrence: US)
  Receive Date: 20130924
  Receipt Date: 20131216
  Transmission Date: 20140711
  Serious: Yes (Hospitalization, Other)
  Sender: FDA-Public Use
  Company Number: US-PFIZER INC-2013273121

PATIENT
  Age: 25 Year
  Sex: Female
  Weight: 58.1 kg

DRUGS (3)
  1. IBUPROFEN [Suspect]
     Indication: SELF-INJURIOUS IDEATION
     Dosage: UNK
     Route: 048
  2. ACETAMINOPHEN [Suspect]
     Indication: SELF-INJURIOUS IDEATION
     Dosage: UNK
     Route: 048
  3. ETHANOL [Suspect]
     Indication: SELF-INJURIOUS IDEATION
     Dosage: UNK
     Route: 048

REACTIONS (6)
  - Self injurious behaviour [Recovered/Resolved]
  - Poisoning [Recovered/Resolved]
  - Intentional drug misuse [Recovered/Resolved]
  - Intentional overdose [Recovered/Resolved]
  - Vomiting [Recovered/Resolved]
  - Alanine aminotransferase increased [Recovered/Resolved]
